FAERS Safety Report 4646509-7 (Version None)
Quarter: 2005Q2

REPORT INFORMATION
  Report Type: 
  Country: None (occurrence: None)
  Receive Date: 20050427
  Receipt Date: 20040630
  Transmission Date: 20051028
  Serious: No
  Sender: FDA-Public Use
  Company Number: US-GLAXOSMITHKLINE-A0516607A

PATIENT
  Age: 54 Year
  Sex: Female

DRUGS (3)
  1. FLOVENT [Suspect]
     Indication: ASTHMA
     Dosage: 2PUFF TWICE PER DAY
     Route: 055
     Dates: start: 20040628, end: 20040629
  2. PREDNISONE [Concomitant]
  3. VICODIN [Concomitant]

REACTIONS (9)
  - DYSGEUSIA [None]
  - HYPOAESTHESIA [None]
  - INSOMNIA [None]
  - MOUTH ULCERATION [None]
  - SEBACEOUS GLAND DISORDER [None]
  - SWELLING [None]
  - SWOLLEN TONGUE [None]
  - TONGUE BLACK HAIRY [None]
  - VASCULAR INJURY [None]
